FAERS Safety Report 21810385 (Version 4)
Quarter: 2023Q1

REPORT INFORMATION
  Report Type: Spontaneous
  Country: GR (occurrence: GR)
  Receive Date: 20230103
  Receipt Date: 20230210
  Transmission Date: 20230417
  Serious: Yes (Hospitalization, Other)
  Sender: FDA-Public Use
  Company Number: GR-009507513-2002GRC006773

PATIENT
  Sex: Female
  Weight: 60 kg

DRUGS (57)
  1. NORVASC [Suspect]
     Active Substance: AMLODIPINE BESYLATE
     Indication: Anaemia
     Dosage: UNK
     Route: 065
  2. NORVASC [Suspect]
     Active Substance: AMLODIPINE BESYLATE
     Indication: Diffuse large B-cell lymphoma
  3. NORVASC [Suspect]
     Active Substance: AMLODIPINE BESYLATE
     Indication: Hypertension
  4. NORVASC [Suspect]
     Active Substance: AMLODIPINE BESYLATE
     Indication: Leukopenia
  5. NORVASC [Suspect]
     Active Substance: AMLODIPINE BESYLATE
     Indication: Non-Hodgkin^s lymphoma
  6. AMLODIPINE BESYLATE [Suspect]
     Active Substance: AMLODIPINE BESYLATE
     Indication: Hypertension
     Dosage: UNK
     Route: 065
  7. AMLODIPINE BESYLATE [Suspect]
     Active Substance: AMLODIPINE BESYLATE
     Indication: Anaemia
  8. AMLODIPINE BESYLATE [Suspect]
     Active Substance: AMLODIPINE BESYLATE
     Indication: Non-Hodgkin^s lymphoma
  9. AMLODIPINE BESYLATE [Suspect]
     Active Substance: AMLODIPINE BESYLATE
     Indication: Diffuse large B-cell lymphoma
  10. AMLODIPINE BESYLATE [Suspect]
     Active Substance: AMLODIPINE BESYLATE
     Indication: Leukopenia
  11. ALDACTONE [Suspect]
     Active Substance: SPIRONOLACTONE
     Indication: Anaemia
     Dosage: UNK
     Route: 065
  12. ALDACTONE [Suspect]
     Active Substance: SPIRONOLACTONE
     Indication: Diffuse large B-cell lymphoma
  13. ALDACTONE [Suspect]
     Active Substance: SPIRONOLACTONE
     Indication: Hypertension
  14. ALDACTONE [Suspect]
     Active Substance: SPIRONOLACTONE
     Indication: Leukopenia
  15. ALDACTONE [Suspect]
     Active Substance: SPIRONOLACTONE
     Indication: Non-Hodgkin^s lymphoma
  16. CUBICIN [Suspect]
     Active Substance: DAPTOMYCIN
     Indication: Anaemia
     Dosage: UNK
     Route: 065
  17. CUBICIN [Suspect]
     Active Substance: DAPTOMYCIN
     Indication: Diffuse large B-cell lymphoma
  18. CUBICIN [Suspect]
     Active Substance: DAPTOMYCIN
     Indication: Hypertension
  19. CUBICIN [Suspect]
     Active Substance: DAPTOMYCIN
     Indication: Leukopenia
  20. CUBICIN [Suspect]
     Active Substance: DAPTOMYCIN
     Indication: Non-Hodgkin^s lymphoma
  21. LASIX [Suspect]
     Active Substance: FUROSEMIDE
     Indication: Anaemia
     Dosage: UNK
     Route: 065
  22. LASIX [Suspect]
     Active Substance: FUROSEMIDE
     Indication: Diffuse large B-cell lymphoma
  23. LASIX [Suspect]
     Active Substance: FUROSEMIDE
     Indication: Hypertension
  24. LASIX [Suspect]
     Active Substance: FUROSEMIDE
     Indication: Leukopenia
  25. LASIX [Suspect]
     Active Substance: FUROSEMIDE
     Indication: Non-Hodgkin^s lymphoma
  26. VALTREX [Suspect]
     Active Substance: VALACYCLOVIR HYDROCHLORIDE
     Indication: Anaemia
     Dosage: UNK
     Route: 065
  27. VALTREX [Suspect]
     Active Substance: VALACYCLOVIR HYDROCHLORIDE
     Indication: Diffuse large B-cell lymphoma
  28. VALTREX [Suspect]
     Active Substance: VALACYCLOVIR HYDROCHLORIDE
     Indication: Hypertension
  29. VALTREX [Suspect]
     Active Substance: VALACYCLOVIR HYDROCHLORIDE
     Indication: Leukopenia
  30. VALTREX [Suspect]
     Active Substance: VALACYCLOVIR HYDROCHLORIDE
     Indication: Non-Hodgkin^s lymphoma
  31. CANCIDAS [Suspect]
     Active Substance: CASPOFUNGIN ACETATE
     Indication: Anaemia
     Dosage: UNK
     Route: 065
  32. CANCIDAS [Suspect]
     Active Substance: CASPOFUNGIN ACETATE
     Indication: Diffuse large B-cell lymphoma
  33. CANCIDAS [Suspect]
     Active Substance: CASPOFUNGIN ACETATE
     Indication: Hypertension
  34. CANCIDAS [Suspect]
     Active Substance: CASPOFUNGIN ACETATE
     Indication: Leukopenia
  35. CANCIDAS [Suspect]
     Active Substance: CASPOFUNGIN ACETATE
     Indication: Non-Hodgkin^s lymphoma
  36. MABTHERA [Suspect]
     Active Substance: RITUXIMAB
     Indication: Anaemia
     Dosage: UNK
     Route: 065
  37. MABTHERA [Suspect]
     Active Substance: RITUXIMAB
     Indication: Diffuse large B-cell lymphoma
  38. MABTHERA [Suspect]
     Active Substance: RITUXIMAB
     Indication: Hypertension
  39. MABTHERA [Suspect]
     Active Substance: RITUXIMAB
     Indication: Leukopenia
  40. MABTHERA [Suspect]
     Active Substance: RITUXIMAB
     Indication: Non-Hodgkin^s lymphoma
  41. LOSEC [Suspect]
     Active Substance: OMEPRAZOLE
     Indication: Anaemia
     Dosage: UNK
     Route: 065
  42. LOSEC [Suspect]
     Active Substance: OMEPRAZOLE
     Indication: Diffuse large B-cell lymphoma
  43. LOSEC [Suspect]
     Active Substance: OMEPRAZOLE
     Indication: Hypertension
  44. LOSEC [Suspect]
     Active Substance: OMEPRAZOLE
     Indication: Leukopenia
  45. LOSEC [Suspect]
     Active Substance: OMEPRAZOLE
     Indication: Non-Hodgkin^s lymphoma
  46. EPOETIN ALFA [Suspect]
     Active Substance: ERYTHROPOIETIN
     Indication: Anaemia
     Dosage: UNK
     Route: 065
  47. EPOETIN ALFA [Suspect]
     Active Substance: ERYTHROPOIETIN
     Indication: Diffuse large B-cell lymphoma
  48. EPOETIN ALFA [Suspect]
     Active Substance: ERYTHROPOIETIN
     Indication: Hypertension
  49. EPOETIN ALFA [Suspect]
     Active Substance: ERYTHROPOIETIN
     Indication: Leukopenia
  50. EPOETIN ALFA [Suspect]
     Active Substance: ERYTHROPOIETIN
     Indication: Non-Hodgkin^s lymphoma
  51. VEPESID [Suspect]
     Active Substance: ETOPOSIDE
     Indication: Anaemia
     Dosage: UNK
     Route: 065
  52. VEPESID [Suspect]
     Active Substance: ETOPOSIDE
     Indication: Diffuse large B-cell lymphoma
  53. VEPESID [Suspect]
     Active Substance: ETOPOSIDE
     Indication: Hypertension
  54. VEPESID [Suspect]
     Active Substance: ETOPOSIDE
     Indication: Leukopenia
  55. VEPESID [Suspect]
     Active Substance: ETOPOSIDE
     Indication: Non-Hodgkin^s lymphoma
  56. EPREX [Suspect]
     Active Substance: ERYTHROPOIETIN
     Dosage: UNK
     Route: 065
  57. DOXYCYCLINE HYDROCHLORIDE [Suspect]
     Active Substance: DOXYCYCLINE HYDROCHLORIDE
     Dosage: UNK
     Route: 065

REACTIONS (3)
  - Diffuse large B-cell lymphoma refractory [Unknown]
  - Neoplasm progression [Unknown]
  - Off label use [Unknown]
